FAERS Safety Report 8272631-2 (Version None)
Quarter: 2012Q2

REPORT INFORMATION
  Report Type: 
  Country: None (occurrence: None)
  Receive Date: 20120410
  Receipt Date: 20100410
  Transmission Date: 20120825
  Serious: Yes (Hospitalization)
  Sender: FDA-Public Use
  Company Number: PHEH2010US003908

PATIENT
  Sex: Female

DRUGS (2)
  1. NEORAL [Suspect]
     Indication: RENAL TRANSPLANT
     Dosage: 125 MG, BID
     Route: 048
  2. RAPAMUNE [Concomitant]

REACTIONS (3)
  - RIB FRACTURE [None]
  - FEMUR FRACTURE [None]
  - ACCIDENT [None]
